FAERS Safety Report 8092856-9 (Version None)
Quarter: 2012Q1

REPORT INFORMATION
  Report Type: 
  Country: None (occurrence: None)
  Receive Date: 20120128
  Receipt Date: 20110726
  Transmission Date: 20120608
  Serious: No
  Sender: FDA-Public Use
  Company Number: US-ABBOTT-11P-163-0841705-00

PATIENT
  Sex: Female
  Weight: 77.18 kg

DRUGS (8)
  1. ROPINIROLE HYDROCHLORIDE [Concomitant]
  2. AMLODIPINE [Concomitant]
     Indication: HYPERTENSION
  3. HUMIRA [Suspect]
     Indication: RHEUMATOID ARTHRITIS
     Dates: start: 20110701
  4. RANITIDINE [Concomitant]
     Indication: GASTROOESOPHAGEAL REFLUX DISEASE
  5. VICODIN [Concomitant]
     Indication: ARTHRALGIA
  6. ROPINIROLE HYDROCHLORIDE [Concomitant]
     Indication: MUSCLE TWITCHING
  7. METOPROLOL TARTRATE AND HYDROCHLOROTHIAZIDE [Concomitant]
     Indication: HYPERTENSION
  8. VITAMIN D [Concomitant]
     Indication: VITAMIN SUPPLEMENTATION

REACTIONS (1)
  - COUGH [None]
